FAERS Safety Report 5076237-8 (Version None)
Quarter: 2006Q3

REPORT INFORMATION
  Report Type: 
  Country: None (occurrence: None)
  Receive Date: 20060804
  Receipt Date: 20060719
  Transmission Date: 20061208
  Serious: Yes (Other)
  Sender: FDA-Public Use
  Company Number: 8018115

PATIENT
  Sex: 0

DRUGS (1)
  1. LEVETIRACETAM [Suspect]

REACTIONS (1)
  - OPTIC ATROPHY [None]
